FAERS Safety Report 5610952-X (Version None)
Quarter: 2008Q1

REPORT INFORMATION
  Report Type: 
  Country: None (occurrence: None)
  Receive Date: 20080201
  Receipt Date: 20080123
  Transmission Date: 20080703
  Serious: Yes (Death, Other)
  Sender: FDA-Public Use
  Company Number: DE-ABBOTT-07P-062-0427693-00

PATIENT
  Age: 70 Year
  Sex: Male
  Weight: 85 kg

DRUGS (3)
  1. HUMIRA [Suspect]
     Indication: RHEUMATOID ARTHRITIS
     Route: 058
     Dates: start: 20050623, end: 20070901
  2. GLUCOCORTICOIDS [Concomitant]
     Indication: RHEUMATOID ARTHRITIS
  3. NSAID'S [Concomitant]
     Indication: RHEUMATOID ARTHRITIS

REACTIONS (9)
  - CARDIAC ARREST [None]
  - CORONARY ANGIOPLASTY [None]
  - HAEMORRHAGIC ANAEMIA [None]
  - HYPERPARATHYROIDISM SECONDARY [None]
  - MYOCARDIAL INFARCTION [None]
  - NEPHROGENIC ANAEMIA [None]
  - PERIPHERAL ARTERIAL OCCLUSIVE DISEASE [None]
  - RENAL ARTERY STENOSIS [None]
  - STENT PLACEMENT [None]
